FAERS Safety Report 8088265 (Version 2)
Quarter: 2012Q4

REPORT INFORMATION
  Report Type: 
  Country: TN (occurrence: TN)
  Receive Date: 20110812
  Receipt Date: 20120904
  Transmission Date: 20130627
  Serious: Yes (Hospitalization)
  Sender: FDA-Public Use
  Company Number: TN-ROCHE-796195

PATIENT
  Age: 45 Year
  Sex: Female

DRUGS (2)
  1. NAPROXEN [Suspect]
     Indication: ARTHRALGIA
     Route: 048
     Dates: start: 2000, end: 201009
  2. NOMEGESTROL [Concomitant]
     Route: 065
     Dates: start: 201005, end: 20100907

REACTIONS (1)
  - Leukocytoclastic vasculitis [Unknown]
